FAERS Safety Report 11390146 (Version 2)
Quarter: 2015Q4

REPORT INFORMATION
  Report Type: Spontaneous
  Country: US (occurrence: US)
  Receive Date: 20150818
  Receipt Date: 20151001
  Transmission Date: 20160304
  Serious: Yes (Death, Hospitalization)
  Sender: FDA-Public Use
  Company Number: US-ROCHE-1622549

PATIENT
  Sex: Female
  Weight: 74.46 kg

DRUGS (1)
  1. ESBRIET [Suspect]
     Active Substance: PIRFENIDONE
     Indication: PRODUCT USED FOR UNKNOWN INDICATION
     Dosage: 3 CAPSULES BY WITH FOOD.
     Route: 048
     Dates: start: 20150130

REACTIONS (3)
  - Bacterial sepsis [Fatal]
  - Metabolic acidosis [Fatal]
  - Septic shock [Fatal]
